FAERS Safety Report 13328366 (Version 5)
Quarter: 2017Q3

REPORT INFORMATION
  Report Type: Spontaneous
  Country: JP (occurrence: JP)
  Receive Date: 20170313
  Receipt Date: 20170717
  Transmission Date: 20171127
  Serious: Yes (Disabling, Other)
  Sender: FDA-Public Use
  Company Number: JP-AMGEN-JPNSP2017037339

PATIENT
  Age: 50 Year
  Sex: Female
  Weight: 41 kg

DRUGS (12)
  1. RANMARK [Suspect]
     Active Substance: DENOSUMAB
     Indication: BREAST CANCER
  2. KADIAN [Concomitant]
     Active Substance: MORPHINE SULFATE
     Dosage: 40 MG, QD
     Route: 048
  3. MARZULENE S [Concomitant]
     Active Substance: GLUTAMINE\SODIUM GUALENATE
     Dosage: 1.5 G, TID
     Route: 048
  4. LAC-B [Concomitant]
     Active Substance: BIFIDOBACTERIUM SPP.
     Dosage: 3 G, TID
     Route: 048
  5. HERCEPTIN [Concomitant]
     Active Substance: TRASTUZUMAB
     Dosage: 315 MG, QD
     Route: 042
  6. DENOTAS [Concomitant]
     Active Substance: CALCIUM CARBONATE\CHOLECALCIFEROL\MAGNESIUM CARBONATE
     Indication: PRODUCT USED FOR UNKNOWN INDICATION
     Dosage: 2 DF, QD
     Route: 048
     Dates: start: 20130823
  7. HALAVEN [Concomitant]
     Active Substance: ERIBULIN MESYLATE
     Dosage: 1.9 MG, QD
     Route: 042
  8. ISODINE [Concomitant]
     Active Substance: POVIDONE-IODINE
     Dosage: UNK, 3-4 TIMES/DAY
     Route: 050
  9. AMOXICILLIN. [Concomitant]
     Active Substance: AMOXICILLIN
     Indication: OSTEONECROSIS OF JAW
     Dosage: 500 MG, BID
     Route: 048
     Dates: start: 20141022
  10. RANMARK [Suspect]
     Active Substance: DENOSUMAB
     Indication: METASTASES TO BONE
     Dosage: 120 MG, QMO
     Route: 058
     Dates: start: 20130823, end: 20160708
  11. ZOLEDRONIC ACID [Suspect]
     Active Substance: ZOLEDRONIC ACID
     Indication: METASTASES TO BONE
     Dosage: UNK
     Route: 065
     Dates: start: 200703, end: 201307
  12. DEXART [Concomitant]
     Active Substance: DEXAMETHASONE SODIUM PHOSPHATE
     Dosage: 2.2 MG, TID
     Route: 042

REACTIONS (1)
  - Osteonecrosis of jaw [Not Recovered/Not Resolved]

NARRATIVE: CASE EVENT DATE: 20141022
